FAERS Safety Report 24699099 (Version 1)
Quarter: 2024Q4

REPORT INFORMATION
  Report Type: Spontaneous
  Country: US (occurrence: US)
  Receive Date: 20241205
  Receipt Date: 20241205
  Transmission Date: 20250115
  Serious: Yes (Other)
  Sender: Haleon PLC
  Company Number: US-HALEON-2212375

PATIENT

DRUGS (1)
  1. ROBITUSSIN (GUAIFENESIN) [Suspect]
     Active Substance: GUAIFENESIN
     Indication: Product used for unknown indication

REACTIONS (1)
  - Drug abuse [Unknown]
